FAERS Safety Report 5719688-8 (Version None)
Quarter: 2008Q2

REPORT INFORMATION
  Report Type: 
  Country: None (occurrence: None)
  Receive Date: 20080428
  Receipt Date: 20080418
  Transmission Date: 20081010
  Serious: Yes (Life-Threatening, Hospitalization)
  Sender: FDA-Public Use
  Company Number: US-ABBOTT-08P-163-0442836-00

PATIENT
  Sex: Female
  Weight: 48.578 kg

DRUGS (16)
  1. HUMIRA [Suspect]
     Indication: PSORIASIS
     Route: 058
     Dates: start: 20050817, end: 20080227
  2. CORTICOSTEROIDS [Concomitant]
     Indication: PSORIASIS
  3. BACTRIM [Concomitant]
     Indication: BRONCHITIS
     Dates: start: 20070108, end: 20070117
  4. FLUTICASONE [Concomitant]
     Indication: NASAL CONGESTION
     Dates: start: 20070108, end: 20070117
  5. SALBUTAMOL SULFATE [Concomitant]
     Indication: BRONCHITIS
     Dates: start: 20070108, end: 20070117
  6. BENZONATATE [Concomitant]
     Indication: COUGH
     Dates: start: 20070108, end: 20070117
  7. PARACETAMOL [Concomitant]
     Indication: MYALGIA
     Dates: start: 20070108, end: 20070117
  8. NADOLOL [Concomitant]
     Indication: HYPERTENSION
     Dates: start: 19940101
  9. NADOLOL [Concomitant]
  10. FLUOCINOMIDE [Concomitant]
     Indication: PRURITUS
     Dosage: 60 GR AND .01%
     Dates: start: 20050518
  11. VALSARTAN [Concomitant]
     Indication: HYPERTENSION
     Dates: start: 19940101
  12. FENOFIBRATE [Concomitant]
     Indication: HYPERCHOLESTEROLAEMIA
     Dates: start: 19940101
  13. ANTIHISTAMINE OTC [Concomitant]
     Indication: HYPERSENSITIVITY
     Dates: start: 19950101
  14. HYDROXYZINE HYDROCHLORIDE [Concomitant]
     Indication: PRURITUS
     Dates: start: 20030104
  15. ACETYLSALICYLIC ACID SRT [Concomitant]
     Indication: ANGINA PECTORIS
     Dates: start: 20051001
  16. FISH OIL [Concomitant]
     Indication: BLOOD TRIGLYCERIDES INCREASED
     Dates: start: 20060218

REACTIONS (4)
  - ABDOMINAL DISTENSION [None]
  - CARDIAC FAILURE CONGESTIVE [None]
  - INFLUENZA [None]
  - SUPRAVENTRICULAR TACHYCARDIA [None]
